FAERS Safety Report 8251057-1 (Version None)
Quarter: 2012Q2

REPORT INFORMATION
  Report Type: 
  Country: None (occurrence: None)
  Receive Date: 20120402
  Receipt Date: 20120326
  Transmission Date: 20120825
  Serious: Yes (Hospitalization, Other)
  Sender: FDA-Public Use
  Company Number: US-TEVA-330620USA

PATIENT
  Age: 30 Year
  Sex: Male

DRUGS (6)
  1. METOCLOPRAMIDE [Suspect]
     Indication: NAUSEA
     Dosage: 10MG BID
     Route: 065
  2. SERTRALINE HYDROCHLORIDE [Suspect]
     Dosage: 50 MILLIGRAM; 50MG DAILY
     Route: 065
  3. CLONAZEPAM [Concomitant]
     Indication: ANXIETY
     Route: 065
  4. METRONIDAZOLE [Concomitant]
     Indication: CLOSTRIDIAL INFECTION
     Route: 065
  5. METOCLOPRAMIDE [Suspect]
     Indication: VOMITING
     Dosage: 10MG BID
     Route: 065
  6. VANCOMYCIN [Concomitant]
     Indication: CLOSTRIDIAL INFECTION
     Route: 065

REACTIONS (7)
  - HOMICIDAL IDEATION [None]
  - APPENDICITIS [None]
  - TACHYPHRENIA [None]
  - RESTLESSNESS [None]
  - INSOMNIA [None]
  - ANXIETY [None]
  - SUICIDAL IDEATION [None]
